FAERS Safety Report 18006353 (Version 1)
Quarter: 2020Q3

REPORT INFORMATION
  Report Type: Spontaneous
  Country: US (occurrence: US)
  Receive Date: 20200710
  Receipt Date: 20200710
  Transmission Date: 20201103
  Serious: No
  Sender: FDA-Public Use
  Company Number: US-JNJFOC-20200712925

PATIENT
  Sex: Female
  Weight: 49.94 kg

DRUGS (1)
  1. IMODIUM MULTI?SYMPTOM RELIEF [Suspect]
     Active Substance: DIMETHICONE\LOPERAMIDE HYDROCHLORIDE
     Indication: COLITIS
     Dosage: 1?2 PILLS 4 TIMES A DAY
     Route: 048
     Dates: start: 20200616, end: 20200706

REACTIONS (4)
  - Dysphagia [Unknown]
  - Product coating issue [Unknown]
  - Incorrect dose administered [Unknown]
  - Product taste abnormal [Unknown]
